FAERS Safety Report 12870761 (Version 2)
Quarter: 2016Q4

REPORT INFORMATION
  Report Type: Report from Study
  Country: US (occurrence: US)
  Receive Date: 20161020
  Receipt Date: 20161111
  Transmission Date: 20170207
  Serious: Yes (Other)
  Sender: FDA-Public Use
  Company Number: US-AMGEN-USASL2016136261

PATIENT
  Age: 73 Year
  Sex: Female
  Weight: 64.58 kg

DRUGS (13)
  1. SYMBICORT [Concomitant]
     Active Substance: BUDESONIDE\FORMOTEROL FUMARATE DIHYDRATE
     Dosage: 160-0.4MUG, BID
  2. REPATHA [Suspect]
     Active Substance: EVOLOCUMAB
     Indication: PRODUCT USED FOR UNKNOWN INDICATION
     Dosage: 140 MG/ML, Q2WK
     Route: 065
     Dates: start: 201511, end: 20160913
  3. ISOSORBIDE DINITRATE. [Concomitant]
     Active Substance: ISOSORBIDE DINITRATE
     Dosage: 10 MG, BID
     Route: 048
  4. BIOTIN [Concomitant]
     Active Substance: BIOTIN
     Dosage: UNK UNK, QD ONE TABLET
     Route: 048
  5. ZOLPIDEM TARTRATE. [Concomitant]
     Active Substance: ZOLPIDEM TARTRATE
     Dosage: 10 MG, AS NECESSARY
     Route: 048
  6. PROPRANOLOL [Concomitant]
     Active Substance: PROPRANOLOL\PROPRANOLOL HYDROCHLORIDE
     Dosage: 60 MG, QD
  7. COENZYME Q10 [Concomitant]
     Active Substance: UBIDECARENONE
     Dosage: 200 MG, QD
     Route: 048
  8. NISOLDIPINE. [Concomitant]
     Active Substance: NISOLDIPINE
     Dosage: 8.5 MG, QD
     Route: 048
  9. PROAIR HFA [Concomitant]
     Active Substance: ALBUTEROL SULFATE
     Dosage: 108 MUG, UNK
     Route: 048
  10. SYNTHROID [Concomitant]
     Active Substance: LEVOTHYROXINE SODIUM
     Dosage: 50 MUG, QD
     Route: 048
  11. RANEXA [Concomitant]
     Active Substance: RANOLAZINE
     Dosage: 500 MG, BID
     Route: 048
  12. NITROSTAT [Concomitant]
     Active Substance: NITROGLYCERIN
     Indication: CHEST PAIN
     Dosage: 0.4 MG, AS NECESSARY
     Route: 060
  13. SERTRALINE HCL [Concomitant]
     Active Substance: SERTRALINE HYDROCHLORIDE
     Dosage: 100 MG, QD
     Route: 048

REACTIONS (5)
  - Influenza like illness [Unknown]
  - Pain in extremity [Recovered/Resolved]
  - Headache [Recovered/Resolved]
  - Malaise [Unknown]
  - Myalgia [Recovered/Resolved]

NARRATIVE: CASE EVENT DATE: 20160913
